FAERS Safety Report 4680297-3 (Version None)
Quarter: 2005Q2

REPORT INFORMATION
  Report Type: 
  Country: None (occurrence: None)
  Receive Date: 20050601
  Receipt Date: 20050519
  Transmission Date: 20051028
  Serious: Yes (Disabling)
  Sender: FDA-Public Use
  Company Number: 200510277GDS

PATIENT
  Age: 54 Year
  Sex: Male
  Weight: 78 kg

DRUGS (4)
  1. LEVITRA [Suspect]
     Indication: SEXUAL DYSFUNCTION
     Dosage: SEE IMAGE
     Route: 048
     Dates: start: 20041220
  2. LEVITRA [Suspect]
     Indication: SEXUAL DYSFUNCTION
     Dosage: SEE IMAGE
     Route: 048
     Dates: start: 20041226
  3. HYTRINE [Concomitant]
  4. LAMISIL [Concomitant]

REACTIONS (7)
  - ERECTION INCREASED [None]
  - INAPPROPRIATE SCHEDULE OF DRUG ADMINISTRATION [None]
  - INJURY [None]
  - PENILE PAIN [None]
  - PENIS DEVIATION [None]
  - SEXUAL DYSFUNCTION [None]
  - VASCULAR RUPTURE [None]
